FAERS Safety Report 4662939-1 (Version None)
Quarter: 2005Q2

REPORT INFORMATION
  Report Type: 
  Country: None (occurrence: None)
  Receive Date: 20050513
  Receipt Date: 20050201
  Transmission Date: 20051028
  Serious: Yes (Death)
  Sender: FDA-Public Use
  Company Number: 2005S1000364

PATIENT
  Age: 86 Year
  Sex: Female

DRUGS (15)
  1. CLOZAPINE [Suspect]
     Indication: DEMENTIA
     Dosage: 75 MG; HS; PO
     Route: 048
     Dates: start: 20031103, end: 20050129
  2. CLOZAPINE [Suspect]
     Indication: SCHIZOPHRENIA
     Dosage: 75 MG; HS; PO
     Route: 048
     Dates: start: 20031103, end: 20050129
  3. CLOZAPINE [Suspect]
     Dosage: 100 MG; HS; PO
     Route: 048
     Dates: start: 20031103, end: 20050129
  4. FENTANYL [Concomitant]
  5. MORPHINE SULFATE [Concomitant]
  6. LEVOTHYROXINE SODIUM [Concomitant]
  7. QUETIAPINE FUMARATE [Concomitant]
  8. ZINC [Concomitant]
  9. TOCOPHEROL CONCENTRATE CAP [Concomitant]
  10. CALCITONIN-SALMON [Concomitant]
  11. SENNA FRUIT [Concomitant]
  12. CARBIDOPA AND LEVODOPA [Concomitant]
  13. ACETYL SALICYLIC ACID USP BAT [Concomitant]
  14. MIRTAZAPINE [Concomitant]
  15. IBUPROFEN [Concomitant]

REACTIONS (1)
  - CEREBROVASCULAR ACCIDENT [None]
